FAERS Safety Report 5930677-0 (Version None)
Quarter: 2008Q4

REPORT INFORMATION
  Report Type: 
  Country: None (occurrence: None)
  Receive Date: 20081027
  Receipt Date: 20081020
  Transmission Date: 20090506
  Serious: Yes (Other)
  Sender: FDA-Public Use
  Company Number: BR-BRISTOL-MYERS SQUIBB COMPANY-14380646

PATIENT
  Age: 46 Year
  Sex: Male
  Weight: 100 kg

DRUGS (3)
  1. APROVEL TABS 150 MG [Suspect]
     Indication: HYPERTENSION
     Dosage: 1 DOSAGE FORM = 1 TAB; 1 TAB DAILY ORAL,STARTED-JUL08;INTERRUPETD-19OCT08;RESTARTED ON 21OCT08
     Route: 048
     Dates: start: 20080701
  2. ACETYLSALICYLIC ACID SRT [Suspect]
     Indication: PULMONARY EMBOLISM
     Dosage: 1 DOSAGE FORM- ONE TABLET DAILY
     Route: 048
     Dates: start: 20080701, end: 20081019
  3. FRESH TEARS [Concomitant]
     Indication: DRY EYE

REACTIONS (2)
  - EPISTAXIS [None]
  - EYE HAEMORRHAGE [None]
